FAERS Safety Report 15304535 (Version 2)
Quarter: 2018Q3

REPORT INFORMATION
  Report Type: Spontaneous
  Country: US (occurrence: US)
  Receive Date: 20180821
  Receipt Date: 20180823
  Transmission Date: 20181010
  Serious: Yes (Other)
  Sender: FDA-Public Use
  Company Number: US-JAZZ-2018-US-012641

PATIENT
  Sex: Male

DRUGS (1)
  1. PRIALT [Suspect]
     Active Substance: ZICONOTIDE ACETATE
     Indication: PAIN
     Dosage: UNK ?G, UNK
     Route: 037

REACTIONS (6)
  - Gait disturbance [Unknown]
  - Impaired driving ability [Unknown]
  - Confusional state [Unknown]
  - Medical device implantation [Unknown]
  - Drug ineffective [Unknown]
  - Amnesia [Unknown]
